FAERS Safety Report 6541611-7 (Version None)
Quarter: 2010Q1

REPORT INFORMATION
  Report Type: 
  Country: None (occurrence: None)
  Receive Date: 20100119
  Receipt Date: 20100114
  Transmission Date: 20100710
  Serious: Yes (Other)
  Sender: FDA-Public Use
  Company Number: US-BRISTOL-MYERS SQUIBB COMPANY-14923452

PATIENT
  Age: 42 Year
  Sex: Male

DRUGS (10)
  1. ABILIFY [Suspect]
     Indication: BIPOLAR DISORDER
     Route: 048
     Dates: start: 20090724
  2. TRAZODONE HCL [Suspect]
     Dosage: 50MG, 1-3 PO AT HS PRN
     Route: 048
  3. EFFEXOR [Suspect]
  4. INDERAL [Suspect]
     Route: 048
  5. ATIVAN [Suspect]
     Dosage: 2MG, 1/2-1 PO DAILY PRN
     Route: 048
  6. LITHIUM [Suspect]
     Route: 048
  7. RISPERIDONE [Concomitant]
  8. ANTIDEPRESSANT [Concomitant]
  9. MULTI-VITAMIN [Concomitant]
  10. LIDOCAINE [Concomitant]

REACTIONS (3)
  - BLOOD GLUCOSE INCREASED [None]
  - BLOOD TRIGLYCERIDES INCREASED [None]
  - PRESYNCOPE [None]
